FAERS Safety Report 5407174-4 (Version None)
Quarter: 2007Q3

REPORT INFORMATION
  Report Type: 
  Country: None (occurrence: None)
  Receive Date: 20070807
  Receipt Date: 20070727
  Transmission Date: 20080115
  Serious: Yes (Hospitalization)
  Sender: FDA-Public Use
  Company Number: FR-MERCK-0707FRA00072

PATIENT
  Age: 75 Year
  Sex: Female

DRUGS (8)
  1. NOROXIN [Suspect]
     Indication: URINARY TRACT INFECTION
     Route: 048
     Dates: start: 20070505, end: 20070512
  2. CIPROFLOXACIN HYDROCHLORIDE [Suspect]
     Indication: URINARY TRACT INFECTION
     Route: 048
     Dates: start: 20070505, end: 20070512
  3. FLUINDIONE [Suspect]
     Route: 048
     Dates: end: 20070514
  4. PAROXETINE HYDROCHLORIDE [Concomitant]
     Route: 048
  5. MEPROBAMATE [Concomitant]
     Route: 048
  6. HALOPERIDOL [Concomitant]
     Route: 048
  7. FOLIC ACID [Concomitant]
     Route: 048
  8. FLUCONAZOLE [Concomitant]
     Route: 048
     Dates: end: 20070512

REACTIONS (1)
  - SUBDURAL HAEMATOMA [None]
